FAERS Safety Report 4657287-X (Version None)
Quarter: 2005Q2

REPORT INFORMATION
  Report Type: 
  Country: None (occurrence: None)
  Receive Date: 20050506
  Receipt Date: 20050422
  Transmission Date: 20051028
  Serious: Yes (Hospitalization)
  Sender: FDA-Public Use
  Company Number: 231584K05USA

PATIENT
  Age: 48 Year
  Sex: Female

DRUGS (6)
  1. REBIF [Suspect]
     Indication: MULTIPLE SCLEROSIS
     Dosage: 44 MCG, 3 IN 1 WEEKS, SUBCUTANEOUS
     Route: 058
     Dates: start: 20030910
  2. EVISTA [Concomitant]
  3. PAXIL [Concomitant]
  4. NUTRALITE MULTIVITAMIN (MULTIVITAMINS) [Concomitant]
  5. MUSCLE RELAXANT (ALL OTHER THERAPEUTIC PRODUCTS) [Concomitant]
  6. DITROPAN [Concomitant]

REACTIONS (4)
  - BACTERIAL INFECTION [None]
  - MOVEMENT DISORDER [None]
  - MULTIPLE SCLEROSIS [None]
  - URINARY TRACT INFECTION BACTERIAL [None]
